FAERS Safety Report 7122040-4 (Version None)
Quarter: 2010Q4

REPORT INFORMATION
  Report Type: 
  Country: None (occurrence: None)
  Receive Date: 20101124
  Receipt Date: 20101118
  Transmission Date: 20110411
  Serious: Yes (Hospitalization)
  Sender: FDA-Public Use
  Company Number: B0678163A

PATIENT
  Sex: Female
  Weight: 60.1 kg

DRUGS (2)
  1. PAZOPANIB [Suspect]
     Indication: MALIGNANT NEOPLASM PROGRESSION
     Route: 048
     Dates: start: 20100823
  2. IFOSFAMIDE [Suspect]
     Indication: MALIGNANT NEOPLASM PROGRESSION
     Route: 042
     Dates: start: 20100830

REACTIONS (3)
  - FEBRILE NEUTROPENIA [None]
  - NEUTROPENIC INFECTION [None]
  - UROSEPSIS [None]
